FAERS Safety Report 6882181-3 (Version None)
Quarter: 2010Q3

REPORT INFORMATION
  Report Type: 
  Country: None (occurrence: None)
  Receive Date: 20100729
  Receipt Date: 20100723
  Transmission Date: 20110219
  Serious: Yes (Congenital Anomaly, Other)
  Sender: FDA-Public Use
  Company Number: US-PFIZER INC-2010092596

PATIENT

DRUGS (1)
  1. ZOLOFT [Suspect]
     Dosage: UNK
     Route: 064

REACTIONS (2)
  - CONGENITAL ANOMALY [None]
  - DRUG EXPOSURE DURING PREGNANCY [None]
